FAERS Safety Report 8765262 (Version 1)
Quarter: 2012Q4

REPORT INFORMATION
  Report Type: 
  Country: US (occurrence: US)
  Receive Date: 20120831
  Receipt Date: 20120831
  Transmission Date: 20130627
  Serious: No
  Sender: FDA-Public Use
  Company Number: US-ASTRAZENECA-2012SE58025

PATIENT
  Age: 24 Year
  Sex: Female
  Weight: 88.5 kg

DRUGS (2)
  1. SEROQUEL XR [Suspect]
     Route: 048
  2. PRENATAL VITAMINS [Concomitant]

REACTIONS (7)
  - Exposure during pregnancy [Unknown]
  - Anxiety [Unknown]
  - Insomnia [Unknown]
  - Feeling of body temperature change [Unknown]
  - Pruritus generalised [Unknown]
  - Somnolence [Unknown]
  - Drug dose omission [Unknown]
